FAERS Safety Report 13724700 (Version 2)
Quarter: 2017Q3

REPORT INFORMATION
  Report Type: Spontaneous
  Country: FR (occurrence: FR)
  Receive Date: 20170706
  Receipt Date: 20170816
  Transmission Date: 20171127
  Serious: Yes (Hospitalization, Other)
  Sender: FDA-Public Use
  Company Number: FR-BAXTER-2017BAX026461

PATIENT
  Age: 55 Year
  Sex: Female

DRUGS (19)
  1. UROMITEXAN 5 G/50 ML, SOLUTION INJECTABLE POUR PERFUSION EN FLACON [Suspect]
     Active Substance: MESNA
     Indication: PROPHYLAXIS
     Route: 042
     Dates: start: 20170427, end: 20170531
  2. UROMITEXAN 5 G/50 ML, SOLUTION INJECTABLE POUR PERFUSION EN FLACON [Suspect]
     Active Substance: MESNA
     Dosage: RE-ADMINISTERED
     Route: 042
     Dates: start: 201707
  3. BACTRIM [Concomitant]
     Active Substance: SULFAMETHOXAZOLE\TRIMETHOPRIM
     Indication: PRODUCT USED FOR UNKNOWN INDICATION
     Dosage: ON MONDAYS, WEDNESDAYS AND FRIDAYS: USUAL TREATMENT
     Route: 065
  4. CALCIDOSE VITAMIN D3 [Concomitant]
     Active Substance: CALCIUM CARBONATE\CHOLECALCIFEROL
     Indication: PRODUCT USED FOR UNKNOWN INDICATION
     Dosage: STRENGTH: 500/400 (UNITS NOT SPECIFIED), USUAL TREATMENT
     Route: 065
  5. ONDANSETRON [Suspect]
     Active Substance: ONDANSETRON
     Indication: PROPHYLAXIS OF NAUSEA AND VOMITING
     Route: 042
     Dates: start: 20170427, end: 20170531
  6. ACICLOVIR [Suspect]
     Active Substance: ACYCLOVIR
     Indication: ADVERSE EVENT
     Route: 065
     Dates: start: 201705, end: 201705
  7. ACTONEL [Concomitant]
     Active Substance: RISEDRONATE SODIUM
     Indication: PRODUCT USED FOR UNKNOWN INDICATION
     Dosage: STRENGTH: 75 (UNITS NOT SPECIFIED), 2 DAYS IN MONTH: USUAL TREATMENT
     Route: 065
  8. RAMIPRIL. [Concomitant]
     Active Substance: RAMIPRIL
     Indication: PRODUCT USED FOR UNKNOWN INDICATION
     Dosage: STRENGTH: 1.25 (UNITS NOT SPECIFIED), USUAL TREATMENT
     Route: 065
  9. ENDOXAN 1000 MG, POUDRE POUR SOLUTION INJECTABLE [Suspect]
     Active Substance: CYCLOPHOSPHAMIDE
     Indication: SYSTEMIC LUPUS ERYTHEMATOSUS
     Dosage: FIRST PERFUSION
     Route: 042
     Dates: start: 20170427, end: 20170427
  10. ENDOXAN 1000 MG, POUDRE POUR SOLUTION INJECTABLE [Suspect]
     Active Substance: CYCLOPHOSPHAMIDE
     Dosage: SECOND PERFUSION
     Route: 042
     Dates: start: 20170511, end: 20170511
  11. METHOTREXATE. [Concomitant]
     Active Substance: METHOTREXATE
     Indication: SYSTEMIC LUPUS ERYTHEMATOSUS
     Route: 065
     Dates: start: 2000
  12. ONDANSETRON [Suspect]
     Active Substance: ONDANSETRON
     Dosage: RE-ADMINISTERED
     Route: 042
     Dates: start: 201707
  13. CORTANCYL [Suspect]
     Active Substance: PREDNISONE
     Indication: SYSTEMIC LUPUS ERYTHEMATOSUS
     Route: 065
  14. ESCITALOPRAM [Concomitant]
     Active Substance: ESCITALOPRAM OXALATE
     Indication: PRODUCT USED FOR UNKNOWN INDICATION
     Dosage: IN THE MORNING: USUAL TREATMENT
     Route: 065
  15. PLAQUENIL [Concomitant]
     Active Substance: HYDROXYCHLOROQUINE SULFATE
     Indication: SYSTEMIC LUPUS ERYTHEMATOSUS
     Route: 065
     Dates: start: 2000
  16. ENDOXAN 1000 MG, POUDRE POUR SOLUTION INJECTABLE [Suspect]
     Active Substance: CYCLOPHOSPHAMIDE
     Dosage: THIRD PERFUSION
     Route: 042
     Dates: start: 20170531, end: 20170531
  17. ENDOXAN 1000 MG, POUDRE POUR SOLUTION INJECTABLE [Suspect]
     Active Substance: CYCLOPHOSPHAMIDE
     Dosage: RE-ADMINISTERED
     Route: 042
     Dates: start: 201707
  18. CORTANCYL [Suspect]
     Active Substance: PREDNISONE
     Indication: SJOGREN^S SYNDROME
     Route: 065
     Dates: start: 201704
  19. CORTANCYL [Suspect]
     Active Substance: PREDNISONE
     Indication: PRODUCT USED FOR UNKNOWN INDICATION
     Dosage: IN THE MORNING WHICH WAS BEING DECREASED, USUAL TREATMENT
     Route: 065

REACTIONS (20)
  - Neck pain [Unknown]
  - Asthenia [Unknown]
  - Pyrexia [Unknown]
  - Phonophobia [Unknown]
  - Palatal ulcer [Unknown]
  - Anxiety [Unknown]
  - Confusional state [Recovered/Resolved]
  - Confusional state [Unknown]
  - Pyrexia [Recovered/Resolved]
  - Paranasal sinus mucosal hypertrophy [Unknown]
  - Blood brain barrier defect [Unknown]
  - Headache [Recovered/Resolved]
  - Rash macular [Unknown]
  - Rash erythematous [Unknown]
  - Photophobia [Unknown]
  - Intention tremor [Recovered/Resolved]
  - Butterfly rash [Unknown]
  - Gait disturbance [Unknown]
  - Aphasia [Unknown]
  - Extensor plantar response [Unknown]

NARRATIVE: CASE EVENT DATE: 201705
